FAERS Safety Report 10557407 (Version 1)
Quarter: 2014Q4

REPORT INFORMATION
  Report Type: Spontaneous
  Country: JP (occurrence: JP)
  Receive Date: 20141031
  Receipt Date: 20141031
  Transmission Date: 20150529
  Serious: Yes (Other)
  Sender: FDA-Public Use
  Company Number: JP-ASTRAZENECA-2014SE81314

PATIENT
  Age: 68 Year
  Sex: Male

DRUGS (2)
  1. XYLOCAINE [Suspect]
     Active Substance: LIDOCAINE HYDROCHLORIDE
     Indication: PAIN
     Dosage: 10 ML (100 MG) WAS ADMINISTERED ALTOGETHER
     Route: 058
  2. XYLOCAINE [Suspect]
     Active Substance: LIDOCAINE HYDROCHLORIDE
     Indication: INJECTION SITE ANAESTHESIA
     Dosage: 10 ML (100 MG) WAS ADMINISTERED ALTOGETHER
     Route: 058

REACTIONS (5)
  - Phrenic nerve paralysis [Recovering/Resolving]
  - Monoplegia [Recovered/Resolved]
  - Horner^s syndrome [Unknown]
  - Miosis [Recovered/Resolved]
  - Brachial plexopathy [Unknown]
